FAERS Safety Report 22114254 (Version 1)
Quarter: 2023Q1

REPORT INFORMATION
  Report Type: Spontaneous
  Country: US (occurrence: None)
  Receive Date: 20230317
  Receipt Date: 20230317
  Transmission Date: 20230418
  Serious: Yes (Disabling)
  Sender: FDA-Public Use
  Company Number: None

PATIENT
  Age: 58 Year
  Sex: Male
  Weight: 85.5 kg

DRUGS (6)
  1. XARELTO [Suspect]
     Active Substance: RIVAROXABAN
     Indication: Deep vein thrombosis
     Dates: start: 20230215
  2. CRESTOR [Concomitant]
     Active Substance: ROSUVASTATIN CALCIUM
  3. XARELTO [Concomitant]
     Active Substance: RIVAROXABAN
  4. PREDNISONE [Concomitant]
     Active Substance: PREDNISONE
  5. PRILOSEC [Concomitant]
     Active Substance: OMEPRAZOLE MAGNESIUM
  6. IMITREX [Concomitant]
     Active Substance: SUMATRIPTAN SUCCINATE

REACTIONS (8)
  - Arthralgia [None]
  - Arthralgia [None]
  - Arthralgia [None]
  - Arthralgia [None]
  - Pain in extremity [None]
  - Arthralgia [None]
  - Inflammatory marker increased [None]
  - Autoimmune disorder [None]

NARRATIVE: CASE EVENT DATE: 20230222
